FAERS Safety Report 6359260-2 (Version None)
Quarter: 2009Q3

REPORT INFORMATION
  Report Type: 
  Country: None (occurrence: None)
  Receive Date: 20090917
  Receipt Date: 20090911
  Transmission Date: 20100115
  Serious: Yes (Other)
  Sender: FDA-Public Use
  Company Number: PL-BAYER-200931986GPV

PATIENT
  Age: 40 Year
  Sex: Female

DRUGS (1)
  1. MIRENA [Suspect]
     Indication: CONTRACEPTION
     Route: 015
     Dates: start: 20070101, end: 20090101

REACTIONS (6)
  - AFFECT LABILITY [None]
  - AMENORRHOEA [None]
  - ASTHENIA [None]
  - HEADACHE [None]
  - LIBIDO DECREASED [None]
  - OEDEMA PERIPHERAL [None]
